FAERS Safety Report 24906072 (Version 2)
Quarter: 2025Q3

REPORT INFORMATION
  Report Type: Report from Study
  Country: US (occurrence: US)
  Receive Date: 20250130
  Receipt Date: 20250809
  Transmission Date: 20251021
  Serious: Yes (Other)
  Sender: ALEXION PHARMACEUTICALS
  Company Number: US-AstraZeneca-CH-00794226A

PATIENT
  Sex: Male

DRUGS (1)
  1. ACALABRUTINIB [Suspect]
     Active Substance: ACALABRUTINIB
     Route: 065

REACTIONS (4)
  - Loss of consciousness [Not Recovered/Not Resolved]
  - Dacryostenosis acquired [Unknown]
  - Brain fog [Not Recovered/Not Resolved]
  - COVID-19 [Not Recovered/Not Resolved]
